FAERS Safety Report 4318694-8 (Version None)
Quarter: 2004Q1

REPORT INFORMATION
  Report Type: 
  Country: None (occurrence: None)
  Receive Date: 20040315
  Receipt Date: 20040301
  Transmission Date: 20041129
  Serious: Yes (Other)
  Sender: FDA-Public Use
  Company Number: AU-JNJFOC-20040300115

PATIENT
  Age: 55 Year
  Sex: Female
  Weight: 56 kg

DRUGS (7)
  1. DOXORUBICIN HCL [Suspect]
     Indication: OVARIAN CANCER
     Dosage: 50 MG, INTRAVENOUS
     Route: 042
     Dates: start: 20030918, end: 20040205
  2. CARBOPLATIN [Suspect]
     Indication: OVARIAN CANCER
     Dosage: 590 MG, INTRAVEOUS
     Route: 042
     Dates: start: 20030918, end: 20040205
  3. PACLITAXEL [Suspect]
     Indication: OVARIAN CANCER
     Dosage: 285 MG, INTRAVENOUS
     Route: 042
     Dates: start: 20030918, end: 20040205
  4. DICLOFENAC SODIUM [Concomitant]
  5. DOTHIEPIN HYDROCHLORIDE [Concomitant]
  6. OXAZEPAM [Concomitant]
  7. METOCLOPRAMIDE [Concomitant]

REACTIONS (7)
  - ANAEMIA [None]
  - CONTUSION [None]
  - DYSPNOEA [None]
  - ELECTROLYTE IMBALANCE [None]
  - LETHARGY [None]
  - PANCYTOPENIA [None]
  - PETECHIAE [None]
